FAERS Safety Report 25546787 (Version 1)
Quarter: 2025Q3

REPORT INFORMATION
  Report Type: Spontaneous
  Country: US (occurrence: US)
  Receive Date: 20250714
  Receipt Date: 20250714
  Transmission Date: 20251021
  Serious: No
  Sender: JOHNSON AND JOHNSON
  Company Number: US-JNJFOC-20250711287

PATIENT
  Age: 54 Year
  Sex: Female
  Weight: 102.51 kg

DRUGS (1)
  1. SIMPONI ARIA [Suspect]
     Active Substance: GOLIMUMAB
     Indication: Ankylosing spondylitis
     Route: 041
     Dates: start: 20250222

REACTIONS (2)
  - Headache [Recovered/Resolved]
  - Incorrect dose administered [Unknown]
